FAERS Safety Report 20121510 (Version 6)
Quarter: 2022Q1

REPORT INFORMATION
  Report Type: Spontaneous
  Country: US (occurrence: US)
  Receive Date: 20211128
  Receipt Date: 20220207
  Transmission Date: 20220423
  Serious: Yes (Hospitalization)
  Sender: FDA-Public Use
  Company Number: US-JNJFOC-20211142820

PATIENT
  Age: 69 Year
  Sex: Female
  Weight: 97.7 kg

DRUGS (4)
  1. OPSUMIT [Suspect]
     Active Substance: MACITENTAN
     Indication: Pulmonary arterial hypertension
     Route: 048
  2. LEVOFLOXACIN [Suspect]
     Active Substance: LEVOFLOXACIN
     Indication: Product used for unknown indication
     Route: 065
  3. XARELTO [Concomitant]
     Active Substance: RIVAROXABAN
  4. DILTIAZEM [Concomitant]
     Active Substance: DILTIAZEM

REACTIONS (7)
  - Peripheral swelling [Unknown]
  - Pulmonary arterial hypertension [Not Recovered/Not Resolved]
  - Cardiac pacemaker insertion [Unknown]
  - Adverse event [Unknown]
  - Haematoma [Unknown]
  - Ecchymosis [Unknown]
  - Hypoaesthesia [Unknown]

NARRATIVE: CASE EVENT DATE: 20211118
